FAERS Safety Report 8664897 (Version 2)
Quarter: 2012Q4

REPORT INFORMATION
  Report Type: 
  Country: DK (occurrence: DK)
  Receive Date: 20120713
  Receipt Date: 20120927
  Transmission Date: 20130627
  Serious: Yes (Hospitalization)
  Sender: FDA-Public Use
  Company Number: DK-ABBOTT-12P-044-0954360-00

PATIENT
  Age: 50 Year
  Sex: Male

DRUGS (6)
  1. HUMIRA 40 MG/ 0.8 ML PRE-FILLED SYRINGE [Suspect]
     Indication: RHEUMATOID ARTHRITIS
     Dosage: Dose on 12 Jun 2012 was taken after a 17 day pause due to infection.
     Route: 058
     Dates: start: 20110308, end: 20120612
  2. REMICADE [Suspect]
     Indication: PRODUCT USED FOR UNKNOWN INDICATION
     Dates: start: 20010719, end: 20051115
  3. ENBREL [Suspect]
     Indication: PRODUCT USED FOR UNKNOWN INDICATION
     Dates: start: 20060522, end: 20101021
  4. ROACTEMRA [Suspect]
     Dates: start: 20101028, end: 20110123
  5. FOLIC ACID [Suspect]
  6. METHOTREXATE [Concomitant]
     Indication: PRODUCT USED FOR UNKNOWN INDICATION
     Route: 058
     Dates: start: 2000

REACTIONS (12)
  - Eyelid ptosis [Recovering/Resolving]
  - Diplopia [Recovering/Resolving]
  - Miller Fisher syndrome [Recovering/Resolving]
  - Ataxia [Recovering/Resolving]
  - Paraesthesia [Recovering/Resolving]
  - Areflexia [Recovering/Resolving]
  - Balance disorder [Recovering/Resolving]
  - Acute polyneuropathy [Recovering/Resolving]
  - Dysarthria [Recovering/Resolving]
  - Dysgeusia [Unknown]
  - Influenza [Unknown]
  - Cough [Unknown]
